FAERS Safety Report 10136971 (Version 1)
Quarter: 2014Q2

REPORT INFORMATION
  Report Type: Spontaneous
  Country: AU (occurrence: None)
  Receive Date: 20140425
  Receipt Date: 20140425
  Transmission Date: 20141212
  Serious: Yes (Hospitalization, Other)
  Sender: FDA-Public Use
  Company Number: 2013000574

PATIENT
  Age: 66 Year
  Sex: Female
  Weight: 56 kg

DRUGS (4)
  1. ACEON [Suspect]
     Indication: CARDIAC FAILURE CONGESTIVE
     Route: 048
     Dates: start: 19960923, end: 19961018
  2. ISORDIL [Suspect]
     Indication: PRODUCT USED FOR UNKNOWN INDICATION
     Route: 048
     Dates: end: 19961018
  3. FRUSEMIDE [Suspect]
     Indication: PRODUCT USED FOR UNKNOWN INDICATION
     Route: 048
     Dates: end: 19961018
  4. SPIRONOLACTONE (SPIRONOLACTONE) [Suspect]
     Indication: PRODUCT USED FOR UNKNOWN INDICATION
     Route: 048
     Dates: end: 19961018

REACTIONS (7)
  - Decreased appetite [None]
  - Dehydration [None]
  - Renal failure acute [None]
  - Hypotension [None]
  - Nausea [None]
  - Vomiting [None]
  - Oliguria [None]
